FAERS Safety Report 25951630 (Version 1)
Quarter: 2025Q4

REPORT INFORMATION
  Report Type: Spontaneous
  Country: EU (occurrence: EU)
  Receive Date: 20251023
  Receipt Date: 20251023
  Transmission Date: 20260117
  Serious: Yes (Other)
  Sender: BRISTOL-MYERS SQUIBB COMPANY
  Company Number: EU-EVENT-004610

PATIENT

DRUGS (5)
  1. LENALIDOMIDE [Suspect]
     Active Substance: LENALIDOMIDE
     Indication: Diffuse large B-cell lymphoma
     Dosage: 5 MILLIGRAM (FOR A TOTAL OF 14 DAYS)
  2. LENALIDOMIDE [Suspect]
     Active Substance: LENALIDOMIDE
     Dosage: 2-4 CYCLES (REDUCED DOSE)
  3. TAFASITAMAB [Suspect]
     Active Substance: TAFASITAMAB
     Indication: Diffuse large B-cell lymphoma
     Dosage: 3 DOSES
     Dates: start: 202206, end: 20220621
  4. TAFASITAMAB [Suspect]
     Active Substance: TAFASITAMAB
     Dosage: MONOTHERAPY
  5. TAFASITAMAB [Suspect]
     Active Substance: TAFASITAMAB
     Dosage: MONOTHERAPY (REDUCED DOSE (75%))

REACTIONS (4)
  - Chronic kidney disease [Unknown]
  - Pneumonia [Recovered/Resolved]
  - Thrombocytopenia [Unknown]
  - Leukopenia [Unknown]
